FAERS Safety Report 15226114 (Version 1)
Quarter: 2018Q3

REPORT INFORMATION
  Report Type: Spontaneous
  Country: US (occurrence: US)
  Receive Date: 20180706
  Receipt Date: 20180706
  Transmission Date: 20181010
  Serious: Yes (Hospitalization)
  Sender: FDA-Public Use
  Company Number: None

PATIENT
  Age: 60 Year
  Sex: Male
  Weight: 120.66 kg

DRUGS (1)
  1. WARFARIN [Suspect]
     Active Substance: WARFARIN
     Indication: CARDIAC VALVE DISEASE
     Route: 048
     Dates: start: 20151214

REACTIONS (4)
  - International normalised ratio abnormal [None]
  - Diarrhoea [None]
  - Abdominal pain [None]
  - Intestinal ischaemia [None]

NARRATIVE: CASE EVENT DATE: 20180607
